FAERS Safety Report 16145860 (Version 1)
Quarter: 2019Q2

REPORT INFORMATION
  Report Type: Spontaneous
  Country: US (occurrence: US)
  Receive Date: 20190228
  Receipt Date: 20190228
  Transmission Date: 20190711
  Serious: No
  Sender: FDA-Public Use
  Company Number: None

PATIENT
  Age: 25 Year
  Sex: Female

DRUGS (1)
  1. SIMPONI [Suspect]
     Active Substance: GOLIMUMAB
     Dates: start: 201709

REACTIONS (3)
  - Abortion spontaneous [None]
  - Maternal drugs affecting foetus [None]
  - Exposure during pregnancy [None]

NARRATIVE: CASE EVENT DATE: 20190129
